FAERS Safety Report 20454160 (Version 1)
Quarter: 2022Q1

REPORT INFORMATION
  Report Type: Spontaneous
  Country: US (occurrence: None)
  Receive Date: 20220209
  Receipt Date: 20220209
  Transmission Date: 20220423
  Serious: No
  Sender: FDA-Public Use
  Company Number: None

PATIENT
  Sex: Female
  Weight: 60.69 kg

DRUGS (9)
  1. BRAFTOVI [Suspect]
     Active Substance: ENCORAFENIB
     Indication: Rectosigmoid cancer
     Dosage: FREQUENCY : DAILY;?
     Route: 048
  2. PROCHLORPERAZINE [Concomitant]
     Active Substance: PROCHLORPERAZINE
  3. TOPROL XL [Concomitant]
     Active Substance: METOPROLOL SUCCINATE
  4. VITAMINS [Concomitant]
     Active Substance: VITAMINS
  5. TRIAMCINOLONE [Concomitant]
     Active Substance: TRIAMCINOLONE
  6. VECTIBIX [Concomitant]
     Active Substance: PANITUMUMAB
  7. LIPITOR [Concomitant]
     Active Substance: ATORVASTATIN CALCIUM
  8. DOXYCYCLINE [Concomitant]
     Active Substance: DOXYCYCLINE
  9. LEVOFLOXACIN [Concomitant]
     Active Substance: LEVOFLOXACIN

REACTIONS (1)
  - Disease progression [None]
